FAERS Safety Report 7559138-2 (Version None)
Quarter: 2011Q2

REPORT INFORMATION
  Report Type: 
  Country: None (occurrence: None)
  Receive Date: 20110613
  Receipt Date: 20110602
  Transmission Date: 20111010
  Serious: Yes (Death)
  Sender: FDA-Public Use
  Company Number: 905201

PATIENT
  Age: 66 Year
  Sex: Male

DRUGS (2)
  1. ATROPINE SULFATE INJ [Concomitant]
  2. EPINEPHRINE [Suspect]
     Indication: CARDIAC ARREST
     Dosage: 1 MG, X 6, INTRAVENOUS BOLUS
     Route: 040
     Dates: start: 20110429, end: 20110429

REACTIONS (2)
  - DEVICE MALFUNCTION [None]
  - DEVICE BREAKAGE [None]
